FAERS Safety Report 16391953 (Version 1)
Quarter: 2019Q2

REPORT INFORMATION
  Report Type: Spontaneous
  Country: US (occurrence: US)
  Receive Date: 20190605
  Receipt Date: 20190605
  Transmission Date: 20190711
  Serious: No
  Sender: FDA-Public Use
  Company Number: US-GLAXOSMITHKLINE-US2019100725

PATIENT

DRUGS (1)
  1. FLONASE ALLERGY RELIEF [Suspect]
     Active Substance: FLUTICASONE PROPIONATE
     Indication: PRODUCT USED FOR UNKNOWN INDICATION
     Dosage: UNK

REACTIONS (6)
  - Rhinorrhoea [Unknown]
  - Nasal oedema [Unknown]
  - Condition aggravated [Unknown]
  - Epistaxis [Unknown]
  - Therapeutic product effect decreased [Unknown]
  - Nasal discomfort [Unknown]
